FAERS Safety Report 7380844-7 (Version None)
Quarter: 2011Q1

REPORT INFORMATION
  Report Type: 
  Country: None (occurrence: None)
  Receive Date: 20110329
  Receipt Date: 20110323
  Transmission Date: 20110831
  Serious: Yes (Hospitalization)
  Sender: FDA-Public Use
  Company Number: B0707772A

PATIENT
  Sex: Male

DRUGS (2)
  1. PREVISCAN [Concomitant]
     Route: 065
  2. AUGMENTIN [Suspect]
     Indication: SIGMOIDITIS
     Route: 048
     Dates: start: 20110202, end: 20110206

REACTIONS (9)
  - HAEMATOMA [None]
  - ARTHRALGIA [None]
  - PURPURA [None]
  - VOMITING [None]
  - PYREXIA [None]
  - LEUKOCYTOCLASTIC VASCULITIS [None]
  - ABDOMINAL PAIN [None]
  - DIARRHOEA [None]
  - JOINT SWELLING [None]
